FAERS Safety Report 16019048 (Version 1)
Quarter: 2019Q1

REPORT INFORMATION
  Report Type: Spontaneous
  Country: FR (occurrence: FR)
  Receive Date: 20190228
  Receipt Date: 20190228
  Transmission Date: 20190418
  Serious: Yes (Death)
  Sender: FDA-Public Use
  Company Number: FR-PFIZER INC-2019085897

PATIENT
  Age: 90 Year
  Sex: Male
  Weight: 45 kg

DRUGS (5)
  1. TIENAM [Concomitant]
     Active Substance: CILASTATIN SODIUM\IMIPENEM
     Dosage: UNK
     Dates: start: 20190118
  2. DALACINE [Suspect]
     Active Substance: CLINDAMYCIN
     Indication: SEPSIS
     Dosage: 1800 MG, 1X/DAY
     Route: 041
     Dates: start: 20190107
  3. DAPTOMYCINE [Suspect]
     Active Substance: DAPTOMYCIN
     Indication: SEPSIS
     Dosage: 500 MG, 1X/DAY
     Route: 041
     Dates: start: 20190103, end: 20190121
  4. BACTRIM [Concomitant]
     Active Substance: SULFAMETHOXAZOLE\TRIMETHOPRIM
     Indication: SEPSIS
     Dosage: UNK
     Route: 041
     Dates: start: 20181227, end: 20190111
  5. ERTAPENEM. [Concomitant]
     Active Substance: ERTAPENEM SODIUM
     Indication: SEPSIS
     Dosage: UNK
     Route: 041
     Dates: start: 20190114, end: 20190118

REACTIONS (1)
  - Eosinophilic pneumonia [Fatal]

NARRATIVE: CASE EVENT DATE: 20190122
